FAERS Safety Report 7670780-0 (Version None)
Quarter: 2011Q3

REPORT INFORMATION
  Report Type: 
  Country: None (occurrence: None)
  Receive Date: 20110809
  Receipt Date: 20110803
  Transmission Date: 20111222
  Serious: Yes (Hospitalization)
  Sender: FDA-Public Use
  Company Number: FR-BRISTOL-MYERS SQUIBB COMPANY-15947625

PATIENT
  Age: 77 Year
  Sex: Male

DRUGS (3)
  1. ALLOPURINOL [Suspect]
     Route: 048
     Dates: start: 20110610, end: 20110617
  2. HYDREA [Suspect]
     Route: 048
     Dates: start: 20110610, end: 20110617
  3. CORDARONE [Suspect]
     Dosage: SCORED TABLET
     Route: 048
     Dates: start: 20110607, end: 20110617

REACTIONS (2)
  - CYTOLYTIC HEPATITIS [None]
  - CHOLESTASIS [None]
